FAERS Safety Report 8638086 (Version 3)
Quarter: 2012Q4

REPORT INFORMATION
  Report Type: 
  Country: FR (occurrence: FR)
  Receive Date: 20120627
  Receipt Date: 20120831
  Transmission Date: 20130627
  Serious: Yes (Hospitalization)
  Sender: FDA-Public Use
  Company Number: FR-B.I. PHARMACEUTICALS,INC./RIDGEFIELD-2012-FF-00807FF

PATIENT
  Age: 71 Year
  Sex: Male
  Weight: 80 kg

DRUGS (6)
  1. PRADAXA [Suspect]
     Indication: ATRIAL FIBRILLATION
     Dosage: 220 mg
     Route: 048
     Dates: end: 20120531
  2. TAHOR [Concomitant]
     Dosage: 40 mg
  3. DETENSIEL [Concomitant]
     Dosage: 5 mg
  4. INEXIUM [Concomitant]
     Dosage: 20 mg
  5. TAREG [Concomitant]
     Dosage: 160 mg
  6. SPASFON [Concomitant]
     Route: 048

REACTIONS (2)
  - Peripheral artery thrombosis [Recovered/Resolved]
  - Peripheral embolism [Recovered/Resolved]
